FAERS Safety Report 4350430-1 (Version None)
Quarter: 2004Q2

REPORT INFORMATION
  Report Type: 
  Country: None (occurrence: None)
  Receive Date: 20040427
  Receipt Date: 20040414
  Transmission Date: 20050107
  Serious: No
  Sender: FDA-Public Use
  Company Number: 04P-163-0256098-00

PATIENT
  Age: 55 Year
  Sex: Female

DRUGS (13)
  1. HUMIRA [Suspect]
     Indication: RHEUMATOID ARTHRITIS
     Dosage: 40 MG 1 IN 2 WK SUBCUTANEOUS
     Route: 058
     Dates: start: 20040304, end: 20040318
  2. MEDROSOLONE PACK [Concomitant]
  3. MELOXICAM [Concomitant]
  4. METHOTREXATE [Concomitant]
  5. ZOLPIDEM TARTRATE [Concomitant]
  6. METFORMIN HYDROCHLORIDE [Concomitant]
  7. PIOGLITAZONE HCL [Concomitant]
  8. ISOPHANE INSULIN [Concomitant]
  9. INSULIN GLARGINE [Concomitant]
  10. FOLIC ACID [Concomitant]
  11. SERTRALINE HYDROCHLORIDE [Concomitant]
  12. LISINOPRIL [Concomitant]
  13. ATORVASTATIN CALCIUM [Concomitant]

REACTIONS (6)
  - HEADACHE [None]
  - HYPOAESTHESIA [None]
  - NERVOUS SYSTEM DISORDER [None]
  - RASH [None]
  - TREMOR [None]
  - VOMITING [None]
